FAERS Safety Report 12100781 (Version 3)
Quarter: 2016Q3

REPORT INFORMATION
  Report Type: Spontaneous
  Country: US (occurrence: US)
  Receive Date: 20160222
  Receipt Date: 20160829
  Transmission Date: 20161109
  Serious: Yes (Life-Threatening, Congenital Anomaly, Other)
  Sender: FDA-Public Use
  Company Number: PHEH2016US004091

PATIENT
  Sex: Female

DRUGS (2)
  1. ZOFRAN ODT [Suspect]
     Active Substance: ONDANSETRON HYDROCHLORIDE
     Indication: FOETAL EXPOSURE DURING PREGNANCY
     Route: 064
  2. ONDANSETRON [Suspect]
     Active Substance: ONDANSETRON
     Indication: FOETAL EXPOSURE DURING PREGNANCY
     Route: 064

REACTIONS (11)
  - Foetal exposure during pregnancy [Unknown]
  - Injury [Unknown]
  - Anhedonia [Unknown]
  - Cardiomegaly [Unknown]
  - Ebstein^s anomaly [Unknown]
  - Pain [Unknown]
  - Anxiety [Unknown]
  - Congenital anomaly [Unknown]
  - Congenital tricuspid valve atresia [Unknown]
  - Emotional distress [Unknown]
  - Heart disease congenital [Unknown]

NARRATIVE: CASE EVENT DATE: 20141014
